FAERS Safety Report 11226715 (Version 1)
Quarter: 2015Q2

REPORT INFORMATION
  Report Type: Spontaneous
  Country: US (occurrence: US)
  Receive Date: 20150630
  Receipt Date: 20150630
  Transmission Date: 20150821
  Serious: No
  Sender: FDA-Public Use
  Company Number: US-SA-2015SA072827

PATIENT
  Age: 53 Year
  Sex: Female

DRUGS (5)
  1. ATIVAN [Concomitant]
     Active Substance: LORAZEPAM
  2. LEXAPRO [Concomitant]
     Active Substance: ESCITALOPRAM OXALATE
  3. GABAPENTIN. [Concomitant]
     Active Substance: GABAPENTIN
  4. AUBAGIO [Suspect]
     Active Substance: TERIFLUNOMIDE
     Route: 065
     Dates: start: 201501
  5. COUMADIN [Concomitant]
     Active Substance: WARFARIN SODIUM

REACTIONS (1)
  - Lymphopenia [Not Recovered/Not Resolved]
